FAERS Safety Report 8730466 (Version 2)
Quarter: 2012Q4

REPORT INFORMATION
  Report Type: 
  Country: US (occurrence: US)
  Receive Date: 20120817
  Receipt Date: 20120910
  Transmission Date: 20130627
  Serious: Yes (Other)
  Sender: FDA-Public Use
  Company Number: US-ASTRAZENECA-2012SE55911

PATIENT
  Age: 49 Year
  Sex: Male
  Weight: 120.2 kg

DRUGS (1)
  1. NEXIUM [Suspect]
     Indication: GASTROOESOPHAGEAL REFLUX DISEASE
     Route: 048
     Dates: start: 2002

REACTIONS (3)
  - Oesophageal neoplasm [Unknown]
  - Aphagia [Unknown]
  - Drug dose omission [Unknown]
